FAERS Safety Report 17352803 (Version 2)
Quarter: 2020Q1

REPORT INFORMATION
  Report Type: Spontaneous
  Country: US (occurrence: US)
  Receive Date: 20200131
  Receipt Date: 20200209
  Transmission Date: 20200409
  Serious: No
  Sender: FDA-Public Use
  Company Number: US-BRISTOL-MYERS SQUIBB COMPANY-BMS-2020-007663

PATIENT
  Sex: Female

DRUGS (16)
  1. GELUSIL ANTACID [Concomitant]
     Indication: FLATULENCE
     Dosage: 2-4 TABS
     Route: 065
  2. PREMARIN [Suspect]
     Active Substance: ESTROGENS, CONJUGATED
     Indication: POLLAKIURIA
     Dosage: 0.625 MILLIGRAM
     Route: 065
  3. VALIUM [Suspect]
     Active Substance: DIAZEPAM
     Indication: PROPHYLAXIS
     Dosage: 5 MG AS NEEDED
     Route: 065
  4. VITAMIN D 2000 [Concomitant]
     Active Substance: VITAMIN D NOS
     Indication: BLOOD CALCIUM DECREASED
     Dosage: 2000 MG 1 CAPSULE DAILY
     Route: 065
  5. ELIQUIS [Suspect]
     Active Substance: APIXABAN
     Indication: PRODUCT USED FOR UNKNOWN INDICATION
     Dosage: 2.5 MILLIGRAM, BID
     Route: 065
     Dates: start: 201909
  6. VALIUM [Suspect]
     Active Substance: DIAZEPAM
     Indication: ANXIETY
     Route: 065
  7. VALIUM [Suspect]
     Active Substance: DIAZEPAM
     Indication: TENSION
     Route: 065
  8. COSAMIN DS [CHONDROITIN SULFATE SODIUM;GLUCOSAMINE HYDROCHLORIDE;MANGA [Concomitant]
     Indication: ARTHRALGIA
     Dosage: 500 MG 3 CAPSULES DAILY
     Route: 065
     Dates: start: 1998
  9. LORADINE [Concomitant]
     Active Substance: LORATADINE
     Indication: PRODUCT USED FOR UNKNOWN INDICATION
     Dosage: 1/MONTH TAKE NIGHT BEFORE  TAKING IBIANDRONATE FOR OSTEO
     Route: 065
  10. LOSARTAN POTASSIUM. [Suspect]
     Active Substance: LOSARTAN POTASSIUM
     Indication: BLOOD PRESSURE DECREASED
     Dosage: 100 MILLIGRAM, QD
     Route: 065
     Dates: start: 20150430
  11. L-LYSINE ACETATE [Concomitant]
     Indication: DENTAL CARE
     Dosage: 1000 MILLIGRAM
     Route: 065
  12. ELIQUIS [Suspect]
     Active Substance: APIXABAN
     Indication: CEREBROVASCULAR ACCIDENT PROPHYLAXIS
     Dosage: 5 MILLIGRAM, QD
     Route: 065
     Dates: start: 20180201
  13. IBANDRONATE [Suspect]
     Active Substance: IBANDRONATE SODIUM
     Indication: PRODUCT USED FOR UNKNOWN INDICATION
     Dosage: 150 MG 1 TAB ONCE/MONTH ON EMPTY STOMACH
     Route: 065
  14. FLECAINIDE ACETATE. [Suspect]
     Active Substance: FLECAINIDE ACETATE
     Indication: HEART RATE INCREASED
     Dosage: 100 MILLIGRAM, BID
     Route: 065
     Dates: start: 20040419
  15. OCUVITE LUTEIN + ZEAXANTHIN [Concomitant]
     Indication: EYE DISORDER
     Dosage: 1 PER DAY
     Route: 065
  16. AMLODIPINE [Suspect]
     Active Substance: AMLODIPINE BESYLATE
     Indication: BLOOD PRESSURE DECREASED
     Dosage: 2.5 MILLIGRAM, QD
     Route: 065
     Dates: start: 20190124

REACTIONS (2)
  - Seasonal allergy [Not Recovered/Not Resolved]
  - Off label use [Unknown]
